FAERS Safety Report 15453186 (Version 1)
Quarter: 2018Q4

REPORT INFORMATION
  Report Type: Spontaneous
  Country: US (occurrence: US)
  Receive Date: 20181001
  Receipt Date: 20181001
  Transmission Date: 20190204
  Serious: No
  Sender: FDA-Public Use
  Company Number: US-ALLERGAN-1771029US

PATIENT
  Age: 42 Year
  Sex: Male

DRUGS (1)
  1. RECTIV [Suspect]
     Active Substance: NITROGLYCERIN
     Indication: HAEMORRHAGE
     Dosage: UNK
     Route: 065
     Dates: start: 20171207, end: 20171207

REACTIONS (3)
  - Loss of consciousness [Recovered/Resolved]
  - Off label use [Unknown]
  - Headache [Recovered/Resolved]

NARRATIVE: CASE EVENT DATE: 20171207
